FAERS Safety Report 5010520-7 (Version None)
Quarter: 2006Q2

REPORT INFORMATION
  Report Type: 
  Country: None (occurrence: None)
  Receive Date: 20060525
  Receipt Date: 20060303
  Transmission Date: 20061013
  Serious: No
  Sender: FDA-Public Use
  Company Number: US-GLAXOSMITHKLINE-A0596037A

PATIENT
  Age: 69 Year
  Sex: Female

DRUGS (6)
  1. MUPIROCIN [Suspect]
     Dosage: 1APP PER DAY
     Route: 045
     Dates: start: 20060201, end: 20060201
  2. PREVACID [Concomitant]
  3. ESTRADIOL [Concomitant]
  4. LIPITOR [Concomitant]
  5. PANCRELIPASE [Concomitant]
  6. FEXOFENADINE [Concomitant]

REACTIONS (1)
  - NASAL DISCOMFORT [None]
